FAERS Safety Report 4781004-6 (Version None)
Quarter: 2005Q3

REPORT INFORMATION
  Report Type: 
  Country: None (occurrence: None)
  Receive Date: 20050927
  Receipt Date: 20050927
  Transmission Date: 20060218
  Serious: No
  Sender: FDA-Public Use
  Company Number: None

PATIENT
  Age: 63 Year
  Sex: Male
  Weight: 76.2043 kg

DRUGS (2)
  1. ALEVE [Suspect]
     Indication: POLYMYALGIA RHEUMATICA
     Dosage: 220 MG   1/DAY   PO
     Route: 048
     Dates: start: 20031201, end: 20041101
  2. NAPROXEN SODIUM [Suspect]
     Indication: POLYMYALGIA RHEUMATICA
     Dosage: 220 MG   1/DAY   PO
     Route: 048
     Dates: start: 20041101, end: 20050101

REACTIONS (9)
  - ARTHRITIS [None]
  - C-REACTIVE PROTEIN INCREASED [None]
  - JOINT SWELLING [None]
  - LYME DISEASE [None]
  - NIGHT SWEATS [None]
  - PHARMACEUTICAL PRODUCT COMPLAINT [None]
  - POLYMYALGIA RHEUMATICA [None]
  - PYREXIA [None]
  - RHEUMATOID ARTHRITIS [None]
